FAERS Safety Report 17164935 (Version 1)
Quarter: 2019Q4

REPORT INFORMATION
  Report Type: Report from Study
  Country: BR (occurrence: BR)
  Receive Date: 20191217
  Receipt Date: 20191217
  Transmission Date: 20200122
  Serious: Yes (Other)
  Sender: FDA-Public Use
  Company Number: PHHY2018BR151464

PATIENT
  Age: 60 Year
  Sex: Male
  Weight: 119 kg

DRUGS (5)
  1. COSENTYX [Suspect]
     Active Substance: SECUKINUMAB
     Dosage: 300 MG, QMO
     Route: 058
     Dates: start: 20181107
  2. COSENTYX [Suspect]
     Active Substance: SECUKINUMAB
     Indication: PSORIATIC ARTHROPATHY
     Dosage: 300 MG, QMO
     Route: 058
     Dates: start: 20180703
  3. COSENTYX [Suspect]
     Active Substance: SECUKINUMAB
     Dosage: UNK
     Route: 065
     Dates: start: 20191111
  4. COSENTYX [Suspect]
     Active Substance: SECUKINUMAB
     Dosage: 300 MG, QMO
     Route: 058
     Dates: start: 20180927
  5. COSENTYX [Suspect]
     Active Substance: SECUKINUMAB
     Dosage: UNK
     Route: 065
     Dates: start: 201910

REACTIONS (9)
  - Feeling cold [Unknown]
  - Weight decreased [Not Recovered/Not Resolved]
  - Ear infection fungal [Recovering/Resolving]
  - Otorrhoea [Not Recovered/Not Resolved]
  - Lung disorder [Recovering/Resolving]
  - Secretion discharge [Not Recovered/Not Resolved]
  - Discharge [Recovered/Resolved]
  - Influenza [Recovered/Resolved]
  - Ear pruritus [Recovering/Resolving]

NARRATIVE: CASE EVENT DATE: 20181023
